FAERS Safety Report 12757606 (Version 1)
Quarter: 2016Q3

REPORT INFORMATION
  Report Type: Spontaneous
  Country: ES (occurrence: ES)
  Receive Date: 20160919
  Receipt Date: 20160919
  Transmission Date: 20161109
  Serious: Yes (Life-Threatening, Other)
  Sender: FDA-Public Use
  Company Number: ES-ACCORD-043983

PATIENT
  Age: 33 Year
  Sex: Female

DRUGS (3)
  1. DOXORUBICIN [Suspect]
     Active Substance: DOXORUBICIN
     Indication: INVASIVE DUCTAL BREAST CARCINOMA
     Dosage: 25 MG/M2 DAYS 1 TO 3 EVERY THREE WEEKS
     Route: 042
  2. PACLITAXEL/PACLITAXEL LIPOSOME [Suspect]
     Active Substance: PACLITAXEL
     Indication: INVASIVE DUCTAL BREAST CARCINOMA
     Dosage: WEEKLY
     Route: 042
  3. ONDANSETRON [Concomitant]
     Active Substance: ONDANSETRON
     Indication: VOMITING
     Route: 042

REACTIONS (8)
  - Mucosal inflammation [Recovered/Resolved]
  - Respiratory tract infection [Unknown]
  - Neutropenia [Unknown]
  - Pyrexia [Unknown]
  - Maternal exposure during pregnancy [Recovered/Resolved]
  - Asthenia [Recovered/Resolved]
  - Anaemia [Unknown]
  - Dyspepsia [Recovered/Resolved]
